FAERS Safety Report 7239497 (Version 2)
Quarter: 2013Q3

REPORT INFORMATION
  Report Type: Spontaneous
  Country: TN (occurrence: None)
  Receive Date: 20091217
  Receipt Date: 20130708
  Transmission Date: 20140515
  Serious: Yes (Hospitalization, Other)
  Sender: FDA-Public Use
  Company Number: AUR-APL-2009-01469

PATIENT
  Age: 30 Year
  Sex: Female

DRUGS (3)
  1. CEFOTAXIME [Suspect]
     Indication: SINUSITIS
     Dosage: 1G, 6 TIMES A DAY
     Route: 042
  2. CIPROFLOXACIN (CIPROFLOXACIN) [Concomitant]
     Indication: SINUSITIS
     Dosage: 500MG BID, OS
  3. FOSFOMYCIN [Suspect]
     Indication: SINUSITIS
     Dosage: 4 G - TID - IV
     Route: 042

REACTIONS (1)
  - Acute generalised exanthematous pustulosis [None]
